FAERS Safety Report 20209654 (Version 1)
Quarter: 2021Q4

REPORT INFORMATION
  Report Type: Spontaneous
  Country: US (occurrence: US)
  Receive Date: 20211221
  Receipt Date: 20211221
  Transmission Date: 20220303
  Serious: Yes (Hospitalization, Other)
  Sender: FDA-Public Use
  Company Number: US-SUN PHARMACEUTICAL INDUSTRIES LTD-2021R1-321241

PATIENT
  Sex: Female

DRUGS (7)
  1. CLINDAMYCIN [Suspect]
     Active Substance: CLINDAMYCIN
     Indication: Amniotic cavity infection
     Dosage: UNK
     Route: 064
  2. CLINDAMYCIN [Suspect]
     Active Substance: CLINDAMYCIN
     Indication: Influenza
  3. AMPICILLIN [Suspect]
     Active Substance: AMPICILLIN
     Indication: Amniotic cavity infection
     Dosage: UNK
     Route: 064
  4. AMPICILLIN [Suspect]
     Active Substance: AMPICILLIN
     Indication: Influenza
  5. GENTAMICIN [Suspect]
     Active Substance: GENTAMICIN
     Indication: Amniotic cavity infection
     Dosage: UNK
     Route: 064
  6. GENTAMICIN [Suspect]
     Active Substance: GENTAMICIN
     Indication: Influenza
  7. TYLENOL [Suspect]
     Active Substance: ACETAMINOPHEN
     Indication: Influenza
     Route: 064

REACTIONS (5)
  - Listeriosis [Unknown]
  - Low birth weight baby [Unknown]
  - Premature baby [Unknown]
  - Intraventricular haemorrhage neonatal [Unknown]
  - Foetal exposure during pregnancy [Unknown]
